FAERS Safety Report 8785449 (Version 1)
Quarter: 2012Q4

REPORT INFORMATION
  Report Type: Report from Study
  Country: CA (occurrence: CA)
  Receive Date: 20120914
  Receipt Date: 20120914
  Transmission Date: 20130627
  Serious: Yes (Death)
  Sender: FDA-Public Use
  Company Number: CA-ROCHE-1127391

PATIENT
  Age: 77 Year

DRUGS (1)
  1. AVASTIN [Suspect]
     Indication: COLORECTAL CANCER
     Dosage: Unknown
     Route: 065
     Dates: start: 201203, end: 201207

REACTIONS (1)
  - Death [Fatal]
